FAERS Safety Report 8688159 (Version 9)
Quarter: 2014Q4

REPORT INFORMATION
  Report Type: Spontaneous
  Country: US (occurrence: US)
  Receive Date: 20120727
  Receipt Date: 20141230
  Transmission Date: 20150529
  Serious: Yes (Hospitalization, Other)
  Sender: FDA-Public Use
  Company Number: US-GLAXOSMITHKLINE-A0987218A

PATIENT
  Age: 49 Year
  Sex: Female

DRUGS (8)
  1. FLOLAN [Suspect]
     Active Substance: EPOPROSTENOL SODIUM
     Dates: start: 20031103
  2. FLOLAN [Suspect]
     Active Substance: EPOPROSTENOL SODIUM
     Dosage: UNK
     Dates: start: 20031103
  3. FLOLAN [Suspect]
     Active Substance: EPOPROSTENOL SODIUM
     Indication: COR PULMONALE CHRONIC
     Dosage: 88.4 NG/KG/MIN CONTINOUSLYCONCENTRATION: 90,000 NG/MLPUMP RATE: 88 ML/DAYVIAL STRENGTH: 1.5 MG
     Route: 042
     Dates: start: 20031103
  4. FLOLAN [Suspect]
     Active Substance: EPOPROSTENOL SODIUM
     Indication: CIRRHOSIS ALCOHOLIC
     Dates: start: 20031103
  5. FLOLAN [Suspect]
     Active Substance: EPOPROSTENOL SODIUM
     Dates: start: 20031103
  6. FLOLAN [Suspect]
     Active Substance: EPOPROSTENOL SODIUM
     Dosage: UNK
     Dates: start: 20031103
  7. FLOLAN [Suspect]
     Active Substance: EPOPROSTENOL SODIUM
     Dosage: UNK
     Dates: start: 20031103
  8. FLOLAN [Suspect]
     Active Substance: EPOPROSTENOL SODIUM
     Dosage: 89.4 NG/KG/MIN CONTINOUS

REACTIONS (23)
  - Therapy cessation [Unknown]
  - Ear infection [Not Recovered/Not Resolved]
  - Pericardial effusion [Unknown]
  - Fatigue [Unknown]
  - Fall [Unknown]
  - Fluid retention [Unknown]
  - Oedema [Unknown]
  - Oedema peripheral [Not Recovered/Not Resolved]
  - Hospitalisation [Unknown]
  - Victim of abuse [Unknown]
  - Vision blurred [Unknown]
  - Nausea [Recovering/Resolving]
  - Dizziness [Recovered/Resolved]
  - Malaise [Unknown]
  - Headache [Unknown]
  - Ascites [Unknown]
  - Medical device complication [Unknown]
  - Dyspnoea [Recovered/Resolved]
  - Device dislocation [Unknown]
  - Lung disorder [Unknown]
  - Underdose [Unknown]
  - Device breakage [Unknown]
  - Dyspnoea [Unknown]

NARRATIVE: CASE EVENT DATE: 201407
